FAERS Safety Report 4412515-0 (Version None)
Quarter: 2004Q2

REPORT INFORMATION
  Report Type: 
  Country: None (occurrence: None)
  Receive Date: 20040630
  Receipt Date: 20040421
  Transmission Date: 20050107
  Serious: No
  Sender: FDA-Public Use
  Company Number: 04P-163-0258665-00

PATIENT
  Age: 36 Year
  Sex: Female
  Weight: 90.7194 kg

DRUGS (7)
  1. HUMIRA [Suspect]
     Indication: RHEUMATOID ARTHRITIS
     Dosage: 40 MG, SUBCUTANEOUS
     Route: 058
     Dates: start: 20040329
  2. METHOTREXATE [Concomitant]
  3. MELOXICAM [Concomitant]
  4. FOLIC ACID [Concomitant]
  5. SERTRALINE HYDROCHLORIDE [Concomitant]
  6. PROPRANOLOL HYDROCHLORIDE [Concomitant]
  7. OXYCODONE HCL [Concomitant]

REACTIONS (2)
  - CONDITION AGGRAVATED [None]
  - HEADACHE [None]
